FAERS Safety Report 8587469 (Version 2)
Quarter: 2012Q4

REPORT INFORMATION
  Report Type: 
  Country: US (occurrence: US)
  Receive Date: 20120531
  Receipt Date: 20121010
  Transmission Date: 20130627
  Serious: Yes (Hospitalization)
  Sender: FDA-Public Use
  Company Number: US-BAYER-2012-052697

PATIENT
  Age: 45 Year
  Sex: Female
  Weight: 77.1 kg

DRUGS (7)
  1. YAZ [Suspect]
     Dosage: UNK
     Dates: start: 201005, end: 20100603
  2. ZOLOFT [Concomitant]
     Indication: DEPRESSION
     Dosage: 150 mg, UNK
     Dates: start: 2005
  3. XANAX [Concomitant]
     Indication: ANXIETY
     Dosage: 1 mg, TID
     Dates: start: 2005
  4. AMBIEN [Concomitant]
     Indication: INSOMNIA
     Dosage: 10 mg, UNK
     Dates: start: 2005
  5. GEODON [Concomitant]
     Indication: DEPRESSION
     Dosage: UNK
     Dates: start: 2005
  6. WELLBUTRIN [Concomitant]
     Indication: DEPRESSION
     Dosage: 150 mg, UNK
  7. TOPAMAX [Concomitant]
     Indication: DEPRESSION
     Dosage: 100 mg, BID

REACTIONS (5)
  - Deep vein thrombosis [None]
  - Blood urine present [None]
  - Injury [None]
  - Pain [None]
  - Pain [None]
